FAERS Safety Report 4950448-1 (Version None)
Quarter: 2006Q1

REPORT INFORMATION
  Report Type: 
  Country: None (occurrence: None)
  Receive Date: 20060322
  Receipt Date: 20060220
  Transmission Date: 20060701
  Serious: Yes (Disabling)
  Sender: FDA-Public Use
  Company Number: 2006AP00863

PATIENT
  Age: 29236 Day
  Sex: Female
  Weight: 52 kg

DRUGS (7)
  1. OMEPRAL [Suspect]
     Indication: REFLUX OESOPHAGITIS
     Route: 048
     Dates: start: 20050805
  2. LANDEL [Suspect]
     Indication: HYPERTENSION
     Route: 048
     Dates: start: 20050805
  3. PRIMPERAN TAB [Suspect]
     Indication: GASTRITIS
     Route: 048
     Dates: start: 20050913
  4. TAMIFLU [Suspect]
     Indication: INFLUENZA
     Route: 048
     Dates: start: 20060217, end: 20060221
  5. ALDACTONE [Concomitant]
     Indication: CARDIAC FAILURE
     Route: 048
     Dates: start: 20050805
  6. HALCION [Concomitant]
     Indication: INSOMNIA
     Route: 048
     Dates: start: 20050805
  7. OLMETEC [Concomitant]
     Indication: HYPERTENSION
     Route: 048
     Dates: start: 20050805

REACTIONS (8)
  - ANOREXIA [None]
  - CONTUSION [None]
  - DEHYDRATION [None]
  - FALL [None]
  - INFLUENZA [None]
  - PYREXIA [None]
  - RENAL FAILURE [None]
  - RHABDOMYOLYSIS [None]
